FAERS Safety Report 11966558 (Version 1)
Quarter: 2016Q1

REPORT INFORMATION
  Report Type: Spontaneous
  Country: TR (occurrence: TR)
  Receive Date: 20160127
  Receipt Date: 20160127
  Transmission Date: 20160526
  Serious: Yes (Hospitalization)
  Sender: FDA-Public Use
  Company Number: TR-BAYER-2016-009727

PATIENT
  Age: 78 Year
  Sex: Female

DRUGS (2)
  1. CIPROXIN [Suspect]
     Active Substance: CIPROFLOXACIN
     Dosage: 200 MG, BID
  2. AMPICILLIN W/SULBACTAM [Suspect]
     Active Substance: AMPICILLIN SODIUM\SULBACTAM SODIUM
     Dosage: 2 G, QD

REACTIONS (2)
  - Ileus [Recovered/Resolved]
  - Bezoar [Recovered/Resolved]
